FAERS Safety Report 8862186 (Version 1)
Quarter: 2012Q4

REPORT INFORMATION
  Report Type: 
  Country: US (occurrence: US)
  Receive Date: 20121026
  Receipt Date: 20121026
  Transmission Date: 20130627
  Serious: Yes (Other)
  Sender: FDA-Public Use
  Company Number: US-PFIZER INC-2012262277

PATIENT
  Age: 56 Year
  Sex: Female

DRUGS (4)
  1. NELFINAVIR MESILATE [Suspect]
     Indication: ANTIRETROVIRAL THERAPY
     Dosage: UNK
     Dates: start: 200407, end: 200407
  2. NELFINAVIR MESILATE [Suspect]
     Dosage: UNK
     Dates: start: 200407
  3. EMTRICITABINE [Suspect]
     Indication: ANTIRETROVIRAL THERAPY
     Dosage: UNK
     Dates: start: 200407
  4. TENOFOVIR [Suspect]
     Indication: ANTIRETROVIRAL THERAPY
     Dosage: UNK
     Dates: start: 200407

REACTIONS (1)
  - Immune reconstitution inflammatory syndrome [Recovering/Resolving]
